FAERS Safety Report 8449515-X (Version None)
Quarter: 2012Q2

REPORT INFORMATION
  Report Type: 
  Country: None (occurrence: None)
  Receive Date: 20120619
  Receipt Date: 20120614
  Transmission Date: 20120825
  Serious: Yes (Disabling)
  Sender: FDA-Public Use
  Company Number: US-TEVA-343753USA

PATIENT
  Sex: Male

DRUGS (1)
  1. COPAXONE [Suspect]
     Indication: MULTIPLE SCLEROSIS
     Dosage: DAILY
     Route: 058

REACTIONS (3)
  - FATIGUE [None]
  - URINARY RETENTION [None]
  - GAIT DISTURBANCE [None]
